FAERS Safety Report 7678312-8 (Version None)
Quarter: 2011Q3

REPORT INFORMATION
  Report Type: 
  Country: None (occurrence: None)
  Receive Date: 20110811
  Receipt Date: 20110808
  Transmission Date: 20111222
  Serious: Yes (Death)
  Sender: FDA-Public Use
  Company Number: PHHY2011FR55528

PATIENT
  Sex: Male
  Weight: 66 kg

DRUGS (6)
  1. TEGRETOL [Suspect]
     Dosage: 200 MG,EVENING
     Dates: start: 20080929
  2. TEGRETOL [Suspect]
     Dosage: 400 MG MORNING AND 600 MG IN EVENING
     Dates: start: 20110701
  3. TEGRETOL [Suspect]
     Dosage: 400 MG, BID MORNING AND EVENING
     Dates: start: 20080301
  4. CLONAZEPAM [Concomitant]
     Dosage: UNK UKN, UNK
     Dates: end: 20060101
  5. TEGRETOL [Suspect]
     Indication: EPILEPSY
     Dosage: 600 MG, BID
     Dates: start: 19950801
  6. TEGRETOL [Suspect]
     Dosage: 100 MG, EVENING
     Dates: start: 20081123

REACTIONS (3)
  - TONGUE BITING [None]
  - MALAISE [None]
  - EPILEPSY [None]
